FAERS Safety Report 19658921 (Version 1)
Quarter: 2021Q3

REPORT INFORMATION
  Report Type: Report from Study
  Country: US (occurrence: US)
  Receive Date: 20210805
  Receipt Date: 20210805
  Transmission Date: 20211014
  Serious: Yes (Other)
  Sender: FDA-Public Use
  Company Number: US-ASTRAZENECA-2021A375249

PATIENT
  Sex: Male

DRUGS (1)
  1. LYNPARZA [Suspect]
     Active Substance: OLAPARIB
     Indication: PROSTATE CANCER
     Route: 048
     Dates: start: 20210424

REACTIONS (7)
  - Asthenia [Unknown]
  - Diarrhoea [Unknown]
  - Confusional state [Unknown]
  - Feeling cold [Recovered/Resolved]
  - Intentional product use issue [Unknown]
  - Gene mutation [Unknown]
  - Fatigue [Unknown]
